FAERS Safety Report 4355529-1 (Version None)
Quarter: 2004Q3

REPORT INFORMATION
  Report Type: 
  Country: None (occurrence: None)
  Receive Date: 20040510
  Receipt Date: 20040428
  Transmission Date: 20050211
  Serious: Yes (Hospitalization, Other)
  Sender: FDA-Public Use
  Company Number: FR-BRISTOL-MYERS SQUIBB COMPANY-12573176

PATIENT
  Age: 82 Year
  Sex: Female

DRUGS (11)
  1. AMIKLIN INJ [Suspect]
     Indication: SEPSIS
     Route: 042
     Dates: start: 20040224, end: 20040311
  2. CIPROFLOXACIN [Suspect]
     Indication: SEPSIS
     Route: 048
     Dates: start: 20040224, end: 20040311
  3. VALACYCLOVIR HCL [Suspect]
     Indication: HERPES ZOSTER
     Route: 048
     Dates: start: 20040303
  4. FLUCONAZOLE [Suspect]
     Indication: CANDIDIASIS
     Dosage: INITIATED AT 50 MG DAILY, INCREASED TO 200 MG DAILY ON 09-MAR-2004
     Route: 048
     Dates: start: 20040306
  5. PRIMAXIN [Suspect]
     Indication: SEPSIS
     Route: 042
     Dates: start: 20040224, end: 20040311
  6. KARDEGIC [Concomitant]
     Dates: start: 20040308
  7. LEVOTHYROXINE SODIUM [Concomitant]
  8. OMEPRAZOLE [Concomitant]
  9. CORDARONE [Concomitant]
  10. GARDENAL [Concomitant]
  11. ASPEGIC 325 [Concomitant]

REACTIONS (4)
  - CANDIDIASIS [None]
  - ERYTHEMA [None]
  - HERPES ZOSTER [None]
  - PRURITUS [None]
